FAERS Safety Report 25132200 (Version 2)
Quarter: 2025Q2

REPORT INFORMATION
  Report Type: Spontaneous
  Country: JP (occurrence: JP)
  Receive Date: 20250328
  Receipt Date: 20250520
  Transmission Date: 20250716
  Serious: Yes (Hospitalization, Other)
  Sender: TAKEDA
  Company Number: JP-TAKEDA-2025TJP003159

PATIENT
  Age: 65 Year
  Sex: Male

DRUGS (1)
  1. FRUZAQLA [Suspect]
     Active Substance: FRUQUINTINIB
     Indication: Colon cancer
     Dates: start: 20250221, end: 20250306

REACTIONS (3)
  - Decreased appetite [Recovered/Resolved]
  - Ventricular tachycardia [Recovered/Resolved]
  - Portal vein thrombosis [Recovered/Resolved]
